FAERS Safety Report 19030028 (Version 2)
Quarter: 2021Q1

REPORT INFORMATION
  Report Type: Spontaneous
  Country: CA (occurrence: CA)
  Receive Date: 20210319
  Receipt Date: 20210323
  Transmission Date: 20210420
  Serious: Yes (Other)
  Sender: FDA-Public Use
  Company Number: CA-ORION CORPORATION ORION PHARMA-21_00013670

PATIENT
  Sex: Female
  Weight: 77 kg

DRUGS (4)
  1. CORTISONE [Concomitant]
     Active Substance: CORTISONE
     Route: 065
  2. METHOTREXATE (TRADE NAME UNKNOWN) [Suspect]
     Active Substance: METHOTREXATE
     Indication: PRODUCT USED FOR UNKNOWN INDICATION
     Route: 065
     Dates: start: 2005, end: 2007
  3. ENBREL [Concomitant]
     Active Substance: ETANERCEPT
     Route: 065
     Dates: start: 2007, end: 2012
  4. PLAQUENIL [Concomitant]
     Active Substance: HYDROXYCHLOROQUINE SULFATE
     Route: 065
     Dates: start: 2005, end: 2007

REACTIONS (4)
  - Contraindication to medical treatment [Unknown]
  - Pulmonary fibrosis [Unknown]
  - Drug intolerance [Unknown]
  - Drug ineffective [Unknown]
